FAERS Safety Report 9951135 (Version 1)
Quarter: 2014Q1

REPORT INFORMATION
  Report Type: Spontaneous
  Country: US (occurrence: US)
  Receive Date: 20140304
  Receipt Date: 20140304
  Transmission Date: 20141002
  Serious: No
  Sender: FDA-Public Use
  Company Number: US-AMGEN-USASP2013090258

PATIENT
  Age: 66 Year
  Sex: Female

DRUGS (13)
  1. ENBREL [Suspect]
     Indication: RHEUMATOID ARTHRITIS
     Dosage: 50 MG, Q7D
     Route: 058
     Dates: start: 201311
  2. LIPITOR [Concomitant]
     Dosage: UNK
  3. TRAMADOL [Concomitant]
     Dosage: UNK
  4. LORAZEPAM [Concomitant]
     Dosage: UNK
  5. PAROXETINE [Concomitant]
     Dosage: UNK
  6. METOPROLOL [Concomitant]
     Dosage: UNK
  7. TRAZODONE [Concomitant]
     Dosage: UNK
  8. LEXAPRO [Concomitant]
     Dosage: UNK
  9. VITAMIN B COMPLEX [Concomitant]
     Dosage: UNK
  10. FISH OIL [Concomitant]
     Dosage: UNK
  11. VITAMIN C                          /00008001/ [Concomitant]
     Dosage: UNK
  12. ASPIRIN (E.C.) [Concomitant]
     Dosage: UNK
  13. CALCIUM CARBONATE W/MAGNESIUM/VITAMIN D NOS/Z [Concomitant]
     Dosage: UNK

REACTIONS (1)
  - Injection site erythema [Unknown]
